FAERS Safety Report 13088810 (Version 1)
Quarter: 2017Q1

REPORT INFORMATION
  Report Type: Spontaneous
  Country: US (occurrence: US)
  Receive Date: 20170105
  Receipt Date: 20170105
  Transmission Date: 20170428
  Serious: Yes (Other)
  Sender: FDA-Public Use
  Company Number: US-PFIZER INC-2017001291

PATIENT
  Age: 3 Year
  Sex: Male
  Weight: 16.33 kg

DRUGS (1)
  1. CHILDRENS ROBITUSSIN COUGH AND COLD CF [Suspect]
     Active Substance: DEXTROMETHORPHAN HYDROBROMIDE\GUAIFENESIN\PHENYLEPHRINE HYDROCHLORIDE
     Indication: COUGH
     Dosage: UNK UNK, SINGLE ^ONLY GOT MAY BE 2ML OR 3ML^
     Route: 048
     Dates: start: 20161229, end: 20161229

REACTIONS (3)
  - Haematemesis [Unknown]
  - Vomiting [Not Recovered/Not Resolved]
  - Drug administered to patient of inappropriate age [Unknown]

NARRATIVE: CASE EVENT DATE: 20161229
